FAERS Safety Report 8970883 (Version 1)
Quarter: 2012Q4

REPORT INFORMATION
  Report Type: 
  Country: US (occurrence: US)
  Receive Date: 20121218
  Receipt Date: 20121218
  Transmission Date: 20130627
  Serious: Yes (Hospitalization)
  Sender: FDA-Public Use
  Company Number: US-ACTELION-A-NJ2012-76338

PATIENT
  Age: 61 Year
  Sex: Female

DRUGS (1)
  1. VELETRI [Suspect]
     Indication: PULMONARY ARTERIAL HYPERTENSION
     Dosage: 36 ng/kg, per min
     Route: 041
     Dates: start: 20100804

REACTIONS (11)
  - Herpes zoster [Unknown]
  - Cellulitis [Unknown]
  - Confusional state [Unknown]
  - Toothache [Unknown]
  - Feeling abnormal [Unknown]
  - Swelling face [Unknown]
  - Pyrexia [Unknown]
  - Dizziness [Unknown]
  - Vomiting [Unknown]
  - Rash [Unknown]
  - Decreased appetite [Unknown]
